FAERS Safety Report 9915475 (Version 1)
Quarter: 2014Q1

REPORT INFORMATION
  Report Type: Spontaneous
  Country: IT (occurrence: IT)
  Receive Date: 20140221
  Receipt Date: 20140221
  Transmission Date: 20141002
  Serious: Yes (Other)
  Sender: FDA-Public Use
  Company Number: IT-DRREDDYS-GER/ITL/14/0038074

PATIENT
  Age: 60 Year
  Sex: Female

DRUGS (2)
  1. OLANZAPINE [Suspect]
     Indication: DEPRESSION
     Route: 048
     Dates: start: 20140116, end: 20140120
  2. LAROXYL [Suspect]
     Indication: DEPRESSION
     Route: 048
     Dates: start: 20140116, end: 20140120

REACTIONS (5)
  - Swollen tongue [Recovered/Resolved]
  - Palatal oedema [Recovered/Resolved]
  - Paraesthesia [Recovered/Resolved]
  - Dizziness [Recovered/Resolved]
  - Dyspnoea [Recovered/Resolved]
